FAERS Safety Report 12530209 (Version 1)
Quarter: 2016Q3

REPORT INFORMATION
  Report Type: Spontaneous
  Country: US (occurrence: US)
  Receive Date: 20160706
  Receipt Date: 20160706
  Transmission Date: 20161109
  Serious: Yes (Other)
  Sender: FDA-Public Use
  Company Number: US-PFIZER INC-2016329127

PATIENT
  Age: 70 Year
  Sex: Male

DRUGS (3)
  1. AXITINIB [Concomitant]
     Active Substance: AXITINIB
     Indication: RENAL CANCER METASTATIC
     Dosage: 5 MG, 2X/DAY
  2. AMLODIPINE BESILATE [Suspect]
     Active Substance: AMLODIPINE BESYLATE
     Dosage: UNK
  3. AXITINIB [Concomitant]
     Active Substance: AXITINIB
     Indication: LUNG NEOPLASM MALIGNANT

REACTIONS (1)
  - Blood pressure inadequately controlled [Recovered/Resolved]
